FAERS Safety Report 9284524 (Version 1)
Quarter: 2013Q2

REPORT INFORMATION
  Report Type: Spontaneous
  Country: US (occurrence: US)
  Receive Date: 20130510
  Receipt Date: 20130510
  Transmission Date: 20140414
  Serious: Yes (Life-Threatening, Hospitalization, Other)
  Sender: FDA-Public Use
  Company Number: US-ALLERGAN-0704390US

PATIENT
  Age: 46 Year
  Sex: Female

DRUGS (7)
  1. BOTOX COSMETIC [Suspect]
     Indication: SKIN WRINKLING
     Dosage: UNK, SINGLE
     Route: 030
  2. SUCCINYLCHOLINE CHLORIDE [Interacting]
     Indication: GENERAL ANAESTHESIA
     Dosage: 140 MG, SINGLE
     Route: 042
  3. ETOMIDATE [Concomitant]
     Indication: GENERAL ANAESTHESIA
     Dosage: 20 MG, SINGLE
     Route: 042
  4. FENTANYL [Concomitant]
     Indication: ANAESTHESIA
  5. SEVOFLURANE [Concomitant]
     Indication: ANAESTHESIA
  6. OXYGEN [Concomitant]
     Indication: ANAESTHESIA
  7. NITROUS OXIDE [Concomitant]
     Indication: ANAESTHESIA

REACTIONS (3)
  - HELLP syndrome [Recovered/Resolved]
  - Nerve stimulation test abnormal [Unknown]
  - Pregnancy [Recovered/Resolved]
